FAERS Safety Report 18230172 (Version 2)
Quarter: 2020Q4

REPORT INFORMATION
  Report Type: Spontaneous
  Country: US (occurrence: US)
  Receive Date: 20200904
  Receipt Date: 20201202
  Transmission Date: 20210113
  Serious: No
  Sender: FDA-Public Use
  Company Number: US-DECIPHERA PHARMACEUTICALS LLC-2020-US-000004

PATIENT
  Age: 79 Year
  Sex: Female

DRUGS (24)
  1. BCQ [Concomitant]
     Indication: CONNECTIVE TISSUE DISORDER
  2. VITAMIN D3 K2 [Concomitant]
     Indication: CARDIAC DISORDER
  3. MELATONIN [Concomitant]
     Active Substance: MELATONIN
     Indication: GASTROINTESTINAL MOTILITY DISORDER
     Dosage: 2 CAP
  4. MAGNESIUM MALATE. [Concomitant]
     Active Substance: MAGNESIUM MALATE
     Indication: INSOMNIA
  5. QINLOCK [Suspect]
     Active Substance: RIPRETINIB
     Dosage: UNK
     Route: 048
     Dates: start: 20200627
  6. QINLOCK [Suspect]
     Active Substance: RIPRETINIB
     Dosage: 150 MILLIGRAM, QD
     Route: 048
  7. PHYTOMAX [Concomitant]
     Indication: BLOOD GLUCOSE ABNORMAL
     Dosage: 1 TAB
  8. PHYTOMAX [Concomitant]
     Indication: CARDIOVASCULAR EVENT PROPHYLAXIS
  9. MELATONIN [Concomitant]
     Active Substance: MELATONIN
     Indication: IMPAIRED HEALING
  10. MELATONIN [Concomitant]
     Active Substance: MELATONIN
     Indication: NEURODEGENERATIVE DISORDER
  11. CO Q 10 [UBIDECARENONE] [Concomitant]
     Indication: ASTHENIA
  12. MAGNESIUM MALATE. [Concomitant]
     Active Substance: MAGNESIUM MALATE
     Indication: ORAL BACTERIAL INFECTION
  13. MELATONIN [Concomitant]
     Active Substance: MELATONIN
     Indication: PULSE ABNORMAL
  14. CO Q 10 [UBIDECARENONE] [Concomitant]
     Indication: ANTIOXIDANT THERAPY
     Dosage: 1 SOFT GEL
  15. QINLOCK [Suspect]
     Active Substance: RIPRETINIB
     Indication: GASTROINTESTINAL STROMAL TUMOUR
     Dosage: 150 MILLIGRAM, QD
     Route: 048
     Dates: start: 20200529
  16. MELATONIN [Concomitant]
     Active Substance: MELATONIN
     Indication: BLOOD PRESSURE MEASUREMENT
  17. MAGNESIUM MALATE. [Concomitant]
     Active Substance: MAGNESIUM MALATE
     Indication: CONSTIPATION
     Dosage: 1250 MILLIGRAM, 2 CAP
  18. BCQ [Concomitant]
     Indication: INFLAMMATION
  19. BCQ [Concomitant]
     Indication: FUNCTIONAL GASTROINTESTINAL DISORDER
  20. VITAMIN D3 K2 [Concomitant]
     Indication: BONE DISORDER
     Dosage: 1 CAP
  21. VITAMIN D3 K2 [Concomitant]
     Indication: BLOOD GLUCOSE ABNORMAL
  22. VITAMIN D3 K2 [Concomitant]
     Indication: NEOPLASM MALIGNANT
  23. OMEGA NORWEGIAN GOLD [Concomitant]
     Dosage: 1 SOFT GEL
  24. PROBIOTICA [Concomitant]
     Active Substance: PROBIOTICS NOS
     Indication: GASTROINTESTINAL DISORDER

REACTIONS (16)
  - Dry skin [Unknown]
  - Constipation [Unknown]
  - Ear pruritus [Not Recovered/Not Resolved]
  - Neoplasm progression [Unknown]
  - Abdominal distension [Unknown]
  - Alopecia [Not Recovered/Not Resolved]
  - Wig wearer [Unknown]
  - Flatulence [Unknown]
  - Myalgia [Unknown]
  - Squamous cell carcinoma of skin [Unknown]
  - Stress [Unknown]
  - Pruritus [Unknown]
  - Skin irritation [Unknown]
  - Rash [Not Recovered/Not Resolved]
  - Hair texture abnormal [Unknown]
  - Muscle spasms [Unknown]

NARRATIVE: CASE EVENT DATE: 20200602
